FAERS Safety Report 18656363 (Version 1)
Quarter: 2020Q4

REPORT INFORMATION
  Report Type: Spontaneous
  Country: JP (occurrence: JP)
  Receive Date: 20201223
  Receipt Date: 20201223
  Transmission Date: 20210114
  Serious: Yes (Death, Hospitalization, Other)
  Sender: FDA-Public Use
  Company Number: JP-ABBVIE-20K-087-3674818-00

PATIENT
  Age: 79 Year
  Sex: Female
  Weight: 55 kg

DRUGS (9)
  1. PIMURO [Concomitant]
     Indication: PRODUCT USED FOR UNKNOWN INDICATION
     Route: 048
  2. DAYVIGO [Concomitant]
     Active Substance: LEMBOREXANT
     Indication: PRODUCT USED FOR UNKNOWN INDICATION
     Route: 048
     Dates: start: 20201022, end: 20201024
  3. NEXIUM [Concomitant]
     Active Substance: ESOMEPRAZOLE MAGNESIUM
     Indication: PRODUCT USED FOR UNKNOWN INDICATION
     Route: 048
     Dates: end: 20201026
  4. IMBRUVICA [Suspect]
     Active Substance: IBRUTINIB
     Indication: CHRONIC LYMPHOCYTIC LEUKAEMIA
     Dosage: IBRUTINIB:140MG
     Route: 048
     Dates: start: 20200630, end: 20201026
  5. DAIPHEN [Concomitant]
     Active Substance: SULFAMETHOXAZOLE\TRIMETHOPRIM
     Indication: PRODUCT USED FOR UNKNOWN INDICATION
     Route: 048
     Dates: start: 20200630, end: 20201026
  6. BEOVA [Concomitant]
     Indication: PRODUCT USED FOR UNKNOWN INDICATION
     Route: 048
     Dates: start: 20201015, end: 20201025
  7. CORECTIM [Concomitant]
     Active Substance: DELGOCITINIB
     Indication: PRODUCT USED FOR UNKNOWN INDICATION
     Dosage: DOSE UNKNOWN
     Route: 065
     Dates: start: 20200928, end: 20201025
  8. ACICLOVIR [Concomitant]
     Active Substance: ACYCLOVIR
     Indication: PRODUCT USED FOR UNKNOWN INDICATION
     Route: 048
     Dates: start: 20200630, end: 20201026
  9. TSUMURA RIKKUNSHITO EXTRACT GRANULES FOR ETHICAL USE [Concomitant]
     Active Substance: HERBALS
     Indication: PRODUCT USED FOR UNKNOWN INDICATION
     Route: 048
     Dates: end: 20201025

REACTIONS (4)
  - Hyponatraemia [Unknown]
  - Blood creatine phosphokinase increased [Unknown]
  - Renal impairment [Unknown]
  - Disseminated cryptococcosis [Fatal]

NARRATIVE: CASE EVENT DATE: 20201026
